FAERS Safety Report 10197536 (Version 1)
Quarter: 2014Q2

REPORT INFORMATION
  Report Type: Spontaneous
  Country: US (occurrence: US)
  Receive Date: 20140527
  Receipt Date: 20140527
  Transmission Date: 20141212
  Serious: No
  Sender: FDA-Public Use
  Company Number: US-NOVEN-14US009423

PATIENT
  Age: 40 Year
  Sex: Female
  Weight: 45.35 kg

DRUGS (3)
  1. MINIVELLE [Suspect]
     Indication: IN VITRO FERTILISATION
     Dosage: 0.1 MG/DAY, CHANGED EVERY OTHER DAY
     Route: 062
     Dates: start: 201401, end: 20140416
  2. ESTROGEN [Concomitant]
     Indication: PRODUCT USED FOR UNKNOWN INDICATION
     Route: 067
  3. PROGESTERONE [Concomitant]
     Indication: PRODUCT USED FOR UNKNOWN INDICATION
     Route: 067

REACTIONS (5)
  - Application site rash [Recovered/Resolved]
  - Application site urticaria [Recovered/Resolved]
  - Off label use [Recovered/Resolved]
  - Drug prescribing error [Recovered/Resolved]
  - Inappropriate schedule of drug administration [Recovered/Resolved]
